FAERS Safety Report 8246029-7 (Version None)
Quarter: 2012Q1

REPORT INFORMATION
  Report Type: 
  Country: None (occurrence: None)
  Receive Date: 20120330
  Receipt Date: 20120324
  Transmission Date: 20120608
  Serious: Yes (Other)
  Sender: FDA-Public Use
  Company Number: US-BAYER-2012-027648

PATIENT
  Age: 55 Year
  Sex: Female

DRUGS (2)
  1. NEXAVAR [Suspect]
     Indication: HEPATIC NEOPLASM MALIGNANT
     Dosage: 400 MG, BID(400 MG AM,400 MG PM)
     Dates: start: 20120317, end: 20120324
  2. ANTIEMETICS AND ANTINAUSEANTS [Concomitant]
     Indication: PROPHYLAXIS OF NAUSEA AND VOMITING

REACTIONS (6)
  - EPISTAXIS [None]
  - SLOW RESPONSE TO STIMULI [None]
  - ASTHENIA [None]
  - FATIGUE [None]
  - URINARY INCONTINENCE [None]
  - PLATELET COUNT DECREASED [None]
